FAERS Safety Report 20219057 (Version 1)
Quarter: 2021Q4

REPORT INFORMATION
  Report Type: Spontaneous
  Country: US (occurrence: None)
  Receive Date: 20211222
  Receipt Date: 20211222
  Transmission Date: 20220303
  Serious: Yes (Disabling)
  Sender: FDA-Public Use
  Company Number: None

PATIENT

DRUGS (1)
  1. DEFINITY [Suspect]
     Active Substance: PERFLUTREN

REACTIONS (7)
  - Lung disorder [None]
  - Cardiac disorder [None]
  - Angina pectoris [None]
  - Pruritus [None]
  - Skin haemorrhage [None]
  - Head injury [None]
  - Loss of consciousness [None]

NARRATIVE: CASE EVENT DATE: 20191227
